FAERS Safety Report 25553111 (Version 1)
Quarter: 2025Q3

REPORT INFORMATION
  Report Type: Spontaneous
  Country: US (occurrence: US)
  Receive Date: 20250715
  Receipt Date: 20250715
  Transmission Date: 20251021
  Serious: Yes (Other)
  Sender: ALEXION PHARMACEUTICALS
  Company Number: US-AstraZeneca-CH-00904898A

PATIENT

DRUGS (3)
  1. FASENRA [Suspect]
     Active Substance: BENRALIZUMAB
     Indication: Asthma
     Route: 065
  2. FASENRA [Suspect]
     Active Substance: BENRALIZUMAB
  3. VISTARIL [Suspect]
     Active Substance: HYDROXYZINE PAMOATE
     Route: 065

REACTIONS (6)
  - Depression [Unknown]
  - Fibromyalgia [Unknown]
  - Sleep disorder [Unknown]
  - Anxiety disorder [Unknown]
  - Hypertension [Unknown]
  - Type 2 diabetes mellitus [Unknown]
